FAERS Safety Report 14562744 (Version 2)
Quarter: 2018Q1

REPORT INFORMATION
  Report Type: Spontaneous
  Country: US (occurrence: US)
  Receive Date: 20180222
  Receipt Date: 20180319
  Transmission Date: 20180509
  Serious: Yes (Death)
  Sender: FDA-Public Use
  Company Number: US-PFIZER INC-2017081237

PATIENT
  Age: 52 Year
  Sex: Male

DRUGS (4)
  1. TOPIRAMATE. [Concomitant]
     Active Substance: TOPIRAMATE
     Dosage: 100 MG, 2X/DAY
     Dates: start: 201606, end: 20170524
  2. DULOXETINE HCL [Concomitant]
     Active Substance: DULOXETINE HYDROCHLORIDE
     Dosage: 30 MG, DAILY
     Dates: end: 20170524
  3. LYRICA [Suspect]
     Active Substance: PREGABALIN
     Indication: DIABETIC NEUROPATHY
     Dosage: 675 MG, DAILY (LYRICA 225 MG CAPSULE / QTY 90 / DAY SUPPLY 30)
  4. LYRICA [Suspect]
     Active Substance: PREGABALIN
     Dosage: 225 MG, 3X/DAY
     Dates: start: 201606, end: 20170524

REACTIONS (2)
  - Prescribed overdose [Unknown]
  - Coronary artery thrombosis [Fatal]
